FAERS Safety Report 8309595-9 (Version None)
Quarter: 2012Q2

REPORT INFORMATION
  Report Type: 
  Country: None (occurrence: None)
  Receive Date: 20120423
  Receipt Date: 20120412
  Transmission Date: 20120825
  Serious: Yes (Hospitalization, Other)
  Sender: FDA-Public Use
  Company Number: ADR-2012-00063

PATIENT
  Sex: Male

DRUGS (2)
  1. LIORESAL [Suspect]
     Indication: SPINAL CORD INJURY
     Dosage: SEE B5
  2. LIORESAL [Suspect]
     Indication: MUSCLE SPASTICITY
     Dosage: SEE B5

REACTIONS (10)
  - MUSCLE SPASMS [None]
  - INTERNATIONAL NORMALISED RATIO INCREASED [None]
  - DEVICE BATTERY ISSUE [None]
  - DEVICE ALARM ISSUE [None]
  - ULCER [None]
  - PNEUMONIA [None]
  - MYOCARDIAL INFARCTION [None]
  - UNRESPONSIVE TO STIMULI [None]
  - UROSEPSIS [None]
  - INCORRECT DOSE ADMINISTERED BY DEVICE [None]
